FAERS Safety Report 9014217 (Version 2)
Quarter: 2014Q2

REPORT INFORMATION
  Report Type: Spontaneous
  Country: US (occurrence: US)
  Receive Date: 20130115
  Receipt Date: 20140603
  Transmission Date: 20141212
  Serious: Yes (Hospitalization, Other)
  Sender: FDA-Public Use
  Company Number: US-009507513-1301USA005265

PATIENT
  Sex: Female
  Weight: 81.63 kg

DRUGS (1)
  1. NUVARING [Suspect]
     Indication: CONTRACEPTION
     Dosage: UNK
     Route: 067
     Dates: start: 201011, end: 201101

REACTIONS (5)
  - Coagulopathy [Unknown]
  - Pulmonary embolism [Unknown]
  - Head injury [Unknown]
  - Constipation [Unknown]
  - Arthralgia [Unknown]
